FAERS Safety Report 13286691 (Version 2)
Quarter: 2019Q1

REPORT INFORMATION
  Report Type: Spontaneous
  Country: FR (occurrence: FR)
  Receive Date: 20170302
  Receipt Date: 20190115
  Transmission Date: 20190417
  Serious: Yes (Hospitalization)
  Sender: FDA-Public Use
  Company Number: FR-ASTRAZENECA-2017SE20642

PATIENT
  Age: 28160 Day
  Sex: Female
  Weight: 68.8 kg

DRUGS (14)
  1. RAMIPRIL. [Concomitant]
     Active Substance: RAMIPRIL
  2. AMLOR [Concomitant]
     Active Substance: AMLODIPINE BESYLATE
  3. VOLTARENE (DICLOFENAC SODIUM) [Suspect]
     Active Substance: DICLOFENAC SODIUM
     Route: 048
     Dates: start: 20170118, end: 20170125
  4. VOLTARENE (DICLOFENAC SODIUM) [Suspect]
     Active Substance: DICLOFENAC SODIUM
     Route: 065
     Dates: start: 20170118, end: 20170125
  5. LASILIX [Concomitant]
     Active Substance: FUROSEMIDE
  6. RISORDAN [Concomitant]
     Active Substance: ISOSORBIDE DINITRATE
  7. NOVORAPID [Concomitant]
     Active Substance: INSULIN ASPART
  8. MOPRAL [Suspect]
     Active Substance: OMEPRAZOLE
     Route: 048
     Dates: end: 20170207
  9. DEXERYL [Concomitant]
  10. TAHOR [Concomitant]
     Active Substance: ATORVASTATIN CALCIUM
  11. LANTUS [Concomitant]
     Active Substance: INSULIN GLARGINE
  12. ATENOLOL. [Concomitant]
     Active Substance: ATENOLOL
  13. KARDEGIC [Concomitant]
     Active Substance: ASPIRIN DL-LYSINE
  14. PARACETAMOL [Concomitant]
     Active Substance: ACETAMINOPHEN

REACTIONS (4)
  - Inappropriate antidiuretic hormone secretion [Recovered/Resolved]
  - Diarrhoea [Unknown]
  - Abdominal pain [Unknown]
  - Cardiac failure [Recovering/Resolving]

NARRATIVE: CASE EVENT DATE: 20170205
